FAERS Safety Report 9067253 (Version 1)
Quarter: 2013Q1

REPORT INFORMATION
  Report Type: Spontaneous
  Country: US (occurrence: US)
  Receive Date: 20130214
  Receipt Date: 20130214
  Transmission Date: 20140127
  Serious: Yes (Other)
  Sender: FDA-Public Use
  Company Number: US-BAYER-2013-014409

PATIENT
  Age: 20 Year
  Sex: Male
  Weight: 73 kg

DRUGS (2)
  1. ALKA-SELTZER PLUS COLD FORMULA ORANGE ZEST [Suspect]
     Indication: NASAL CONGESTION
     Dosage: 2 DF, QD
     Route: 048
     Dates: start: 20130129, end: 20130130
  2. NYQUIL [Concomitant]

REACTIONS (1)
  - Hypoacusis [Not Recovered/Not Resolved]
